FAERS Safety Report 6044429-7 (Version None)
Quarter: 2009Q1

REPORT INFORMATION
  Report Type: 
  Country: None (occurrence: None)
  Receive Date: 20090120
  Receipt Date: 20090112
  Transmission Date: 20090719
  Serious: Yes (Other)
  Sender: FDA-Public Use
  Company Number: US-JNJCH-2009001185

PATIENT

DRUGS (1)
  1. COOL MINT LISTERINE POCKETPAKS [Suspect]
     Indication: DRUG USE FOR UNKNOWN INDICATION
     Dosage: TEXT:UNSPECIFIED
     Route: 048

REACTIONS (6)
  - APPLICATION SITE BURN [None]
  - APPLICATION SITE ERYTHEMA [None]
  - DRY MOUTH [None]
  - GLOSSODYNIA [None]
  - STOMATITIS [None]
  - TONGUE DISORDER [None]
